FAERS Safety Report 4779882-X (Version None)
Quarter: 2005Q3

REPORT INFORMATION
  Report Type: 
  Country: None (occurrence: None)
  Receive Date: 20050914
  Receipt Date: 20041011
  Transmission Date: 20060218
  Serious: Yes (Hospitalization)
  Sender: FDA-Public Use
  Company Number: 163-20785-04100297

PATIENT
  Age: 64 Year
  Sex: Male
  Weight: 92.5338 kg

DRUGS (11)
  1. THALOMID [Suspect]
     Indication: IDIOPATHIC PULMONARY FIBROSIS
     Dosage: 50-100MG, DAILY, ORAL
     Route: 048
     Dates: start: 20040907, end: 20041009
  2. ASPIRIN [Concomitant]
  3. ACIPHEX [Concomitant]
  4. DIOVAN (CO-DIOVAN) [Concomitant]
  5. LIPITOR [Concomitant]
  6. TIAZAC [Concomitant]
  7. AMBIEN [Concomitant]
  8. ISOSORBIDE (ISOSORBIDE) [Concomitant]
  9. ZYRTEC [Concomitant]
  10. NASACORT [Concomitant]
  11. FUROSEMIDE [Concomitant]

REACTIONS (1)
  - RESPIRATORY DISTRESS [None]
